FAERS Safety Report 9984465 (Version 1)
Quarter: 2014Q1

REPORT INFORMATION
  Report Type: Report from Study
  Country: US (occurrence: US)
  Receive Date: 20140307
  Receipt Date: 20140307
  Transmission Date: 20141002
  Serious: No
  Sender: FDA-Public Use
  Company Number: US-ABBVIE-13P-163-1183632-00

PATIENT
  Age: 57 Year
  Sex: Female

DRUGS (8)
  1. HUMIRA [Suspect]
     Indication: PULMONARY SARCOIDOSIS
     Dates: start: 201311
  2. METHOTREXATE [Concomitant]
     Indication: SARCOIDOSIS
  3. PREDNISONE [Concomitant]
     Indication: SARCOIDOSIS
  4. FOLIC ACID [Concomitant]
     Indication: DRUG THERAPY
  5. WELLBUTRIN [Concomitant]
     Indication: STRESS
  6. SEROQUEL [Concomitant]
     Indication: INSOMNIA
  7. TOPROL [Concomitant]
     Indication: CARDIAC DISORDER
  8. TOPROL [Concomitant]
     Dates: start: 20131218

REACTIONS (1)
  - Heart rate irregular [Not Recovered/Not Resolved]
